FAERS Safety Report 17446445 (Version 1)
Quarter: 2020Q1

REPORT INFORMATION
  Report Type: Spontaneous
  Country: US (occurrence: US)
  Receive Date: 20200221
  Receipt Date: 20200221
  Transmission Date: 20200409
  Serious: No
  Sender: FDA-Public Use
  Company Number: US-BRACCO-2019US04962

PATIENT
  Sex: Male

DRUGS (1)
  1. ISOVUE 300 [Suspect]
     Active Substance: IOPAMIDOL
     Indication: SPINAL MYELOGRAM
     Dosage: 13 ML, SINGLE
     Route: 037
     Dates: start: 20191001, end: 20191001

REACTIONS (2)
  - Incorrect product formulation administered [Unknown]
  - No adverse event [Unknown]

NARRATIVE: CASE EVENT DATE: 20191001
